FAERS Safety Report 13789623 (Version 1)
Quarter: 2017Q3

REPORT INFORMATION
  Report Type: Spontaneous
  Country: US (occurrence: US)
  Receive Date: 20170725
  Receipt Date: 20170725
  Transmission Date: 20171127
  Serious: Yes (Other)
  Sender: FDA-Public Use
  Company Number: US-UNITED THERAPEUTICS-UNT-2017-001683

PATIENT
  Age: 34 Year
  Sex: Female
  Weight: 83.9 kg

DRUGS (3)
  1. XARELTO [Concomitant]
     Active Substance: RIVAROXABAN
     Indication: PRODUCT USED FOR UNKNOWN INDICATION
  2. REMODULIN [Suspect]
     Active Substance: TREPROSTINIL
     Indication: PULMONARY ARTERIAL HYPERTENSION
     Dosage: 0.03967 ?G/KG, CONTINUING
     Route: 058
     Dates: start: 20150904
  3. ADEMPAS [Concomitant]
     Active Substance: RIOCIGUAT
     Indication: PRODUCT USED FOR UNKNOWN INDICATION

REACTIONS (14)
  - Sputum discoloured [Unknown]
  - Feeling abnormal [Unknown]
  - Haemoptysis [Recovered/Resolved]
  - Tremor [Unknown]
  - Depression [Unknown]
  - Dyspnoea [Unknown]
  - Stress [Unknown]
  - Dyspepsia [Unknown]
  - Nasal congestion [Unknown]
  - Fatigue [Unknown]
  - Sinus congestion [Unknown]
  - Diarrhoea [Unknown]
  - Nasal dryness [Unknown]
  - Somnolence [Unknown]

NARRATIVE: CASE EVENT DATE: 201702
